FAERS Safety Report 8350125-3 (Version None)
Quarter: 2012Q2

REPORT INFORMATION
  Report Type: 
  Country: None (occurrence: None)
  Receive Date: 20120510
  Receipt Date: 20120503
  Transmission Date: 20120825
  Serious: Yes (Hospitalization)
  Sender: FDA-Public Use
  Company Number: US-BAYER-2012-014665

PATIENT
  Age: 16 Year
  Sex: Female
  Weight: 113 kg

DRUGS (20)
  1. BENZONATATE [Concomitant]
     Indication: COUGH
     Dosage: 100 MG, TID
  2. CLINDAMYCIN [Concomitant]
     Dosage: 1 PERCENT, APPLY 2 TIMES A DAY
     Route: 061
  3. YAZ [Suspect]
     Indication: ACNE
     Dosage: UNK
     Dates: start: 20090923, end: 20100104
  4. YAZ [Suspect]
     Indication: PREMENSTRUAL SYNDROME
  5. RITALIN LA [Concomitant]
  6. MIDRIN [Concomitant]
     Indication: MIGRAINE
     Dosage: 65-325-100 MG, TAKE 1 EVERY 4 HOURS AS NEEDED
  7. MUCINEX [Concomitant]
     Route: 048
  8. YAZ [Suspect]
  9. ALBUTEROL [Concomitant]
     Indication: WHEEZING
     Dosage: 90 MCG/ACT INHALER, 2 PUFFS EVERY 4 HOURS AS NEEDED
  10. TRETINOIN [Concomitant]
     Dosage: 0.1 PERCENT CREAM, APPLY 0.5 G NIGHTLY
     Route: 061
  11. YAZ [Suspect]
     Indication: MENSTRUATION IRREGULAR
  12. PROMETHAZINE - CODEINE [CITRIC AC,CODEINE,PROMETHAZ,NA+ CITR AC,SU [Concomitant]
     Indication: COUGH
     Dosage: 6.25-10 MG/ML, TAKE 5 ML EVERY 4 HOURS AS NEEDED
  13. AMOXICILLIN AND CLAVULANATE POTASSIUM [Concomitant]
     Dosage: 875-125 MG
  14. FLUCONAZOLE [Concomitant]
     Dosage: 150 UNK, UNK
  15. SODIUM CHLORIDE [Concomitant]
     Dosage: 0.65 PERCENT
     Route: 045
  16. RETIN-A [Concomitant]
     Dosage: 20 MG, UNK
  17. IBUPROFEN [Concomitant]
  18. SILVER SULFADIAZINE CREAM 1 PERCENT CREAM [Concomitant]
     Dosage: DAILY
     Route: 061
  19. CEPHALEXIN [Concomitant]
     Dosage: 500 MG 4 TIMES DAILY FOR 10 DAYS
  20. NASONEX [Concomitant]

REACTIONS (11)
  - PULMONARY EMBOLISM [None]
  - HEADACHE [None]
  - PAIN IN EXTREMITY [None]
  - VOMITING [None]
  - PAIN [None]
  - ABDOMINAL DISCOMFORT [None]
  - DYSPNOEA [None]
  - NAUSEA [None]
  - OEDEMA PERIPHERAL [None]
  - HYPOAESTHESIA [None]
  - DEEP VEIN THROMBOSIS [None]
